FAERS Safety Report 18610685 (Version 2)
Quarter: 2020Q4

REPORT INFORMATION
  Report Type: Spontaneous
  Country: IT (occurrence: IT)
  Receive Date: 20201214
  Receipt Date: 20201225
  Transmission Date: 20210114
  Serious: Yes (Hospitalization, Other)
  Sender: FDA-Public Use
  Company Number: IT-SA-2020SA352914

PATIENT

DRUGS (5)
  1. ALPRAZOLAM. [Suspect]
     Active Substance: ALPRAZOLAM
     Indication: PERSONALITY DISORDER
     Dosage: 16 DF, TOTAL
     Route: 048
     Dates: start: 20190206, end: 20190206
  2. STILNOX [Suspect]
     Active Substance: ZOLPIDEM TARTRATE
     Indication: PERSONALITY DISORDER
     Dosage: 30 DF, TOTAL
     Route: 048
     Dates: start: 20190206, end: 20190206
  3. DAPAROX [PAROXETINE MESILATE] [Suspect]
     Active Substance: PAROXETINE MESYLATE
     Indication: PERSONALITY DISORDER
     Dosage: 15 DF, TOTAL
     Route: 048
     Dates: start: 20190206, end: 20190206
  4. VENLAFAXINE HYDROCHLORIDE. [Suspect]
     Active Substance: VENLAFAXINE HYDROCHLORIDE
     Indication: PERSONALITY DISORDER
     Dosage: 28 DF, TOTAL
     Route: 048
     Dates: start: 20190206, end: 20190206
  5. ALPRAZOLAM. [Suspect]
     Active Substance: ALPRAZOLAM
     Indication: PERSONALITY DISORDER
     Dosage: 37 DF, TOTAL
     Route: 048
     Dates: start: 20190206, end: 20190206

REACTIONS (6)
  - Bradyphrenia [Recovering/Resolving]
  - Overdose [Unknown]
  - Mydriasis [Recovering/Resolving]
  - Suicide attempt [Recovering/Resolving]
  - Drug abuse [Unknown]
  - Gait disturbance [Recovering/Resolving]

NARRATIVE: CASE EVENT DATE: 20190206
